FAERS Safety Report 5626373-X (Version None)
Quarter: 2008Q1

REPORT INFORMATION
  Report Type: 
  Country: None (occurrence: None)
  Receive Date: 20080213
  Receipt Date: 20080213
  Transmission Date: 20080703
  Serious: Yes (Other)
  Sender: FDA-Public Use
  Company Number: None

PATIENT
  Age: 54 Year
  Sex: Female
  Weight: 57.6068 kg

DRUGS (4)
  1. AMPHETAMINE SALTS   30 MG TAB   BARR PHARMACEUTICALS, [Suspect]
     Indication: DISTURBANCE IN ATTENTION
     Dosage: 1 30MGTABLET TWICE A DAY  TWICE A DAY= 2=60  PO
     Route: 048
     Dates: start: 20071221, end: 20080201
  2. AMPHETAMINE SALTS   30 MG TAB   BARR PHARMACEUTICALS, [Suspect]
     Indication: NERVOUSNESS
     Dosage: 1 30MGTABLET TWICE A DAY  TWICE A DAY= 2=60  PO
     Route: 048
     Dates: start: 20071221, end: 20080201
  3. AMPHETAMINE SALTS   30 MG TAB   BARR PHARMACEUTICALS, [Suspect]
     Indication: SPEECH DISORDER
     Dosage: 1 30MGTABLET TWICE A DAY  TWICE A DAY= 2=60  PO
     Route: 048
     Dates: start: 20071221, end: 20080201
  4. AMPHETAMINE SALTS   30 MG TAB   BARR PHARMACEUTICALS, [Suspect]
     Indication: THINKING ABNORMAL
     Dosage: 1 30MGTABLET TWICE A DAY  TWICE A DAY= 2=60  PO
     Route: 048
     Dates: start: 20071221, end: 20080201

REACTIONS (8)
  - ANGER [None]
  - ASTHENIA [None]
  - DISTURBANCE IN ATTENTION [None]
  - MEMORY IMPAIRMENT [None]
  - RASH [None]
  - SLUGGISHNESS [None]
  - SOCIAL PROBLEM [None]
  - THINKING ABNORMAL [None]
